FAERS Safety Report 7751244-2 (Version None)
Quarter: 2011Q3

REPORT INFORMATION
  Report Type: 
  Country: None (occurrence: None)
  Receive Date: 20110914
  Receipt Date: 20090420
  Transmission Date: 20111222
  Serious: Yes (Other)
  Sender: FDA-Public Use
  Company Number: PHHY2009NL67014

PATIENT
  Sex: Female

DRUGS (2)
  1. SANDOSTATIN LAR [Suspect]
     Dosage: 30 MG, ONCE PER 3 WEEKS
     Dates: start: 20090728
  2. SANDOSTATIN LAR [Suspect]
     Indication: CARCINOID TUMOUR
     Dosage: 30 MG, ONCE PER 3 WEEKS
     Dates: start: 20051116

REACTIONS (2)
  - PULMONARY OEDEMA [None]
  - GENERALISED OEDEMA [None]
